FAERS Safety Report 14184975 (Version 1)
Quarter: 2017Q4

REPORT INFORMATION
  Report Type: Spontaneous
  Country: ES (occurrence: ES)
  Receive Date: 20171113
  Receipt Date: 20171113
  Transmission Date: 20180321
  Serious: Yes (Other)
  Sender: FDA-Public Use
  Company Number: ES-IMPAX LABORATORIES, INC-2017-IPXL-03133

PATIENT
  Age: 57 Year
  Sex: Male

DRUGS (2)
  1. ALBENZA [Suspect]
     Active Substance: ALBENDAZOLE
     Indication: ECHINOCOCCIASIS
  2. ALBENZA [Suspect]
     Active Substance: ALBENDAZOLE
     Indication: PERITONEAL CYST
     Dosage: 400 MG, 2 /DAY
     Route: 048

REACTIONS (6)
  - Pancytopenia [Recovered/Resolved]
  - Haematotoxicity [Recovered/Resolved]
  - Alopecia [Unknown]
  - Bone marrow failure [Recovered/Resolved]
  - Haematocrit decreased [Recovered/Resolved]
  - Transaminases increased [Unknown]
